FAERS Safety Report 19241088 (Version 1)
Quarter: 2021Q2

REPORT INFORMATION
  Report Type: Spontaneous
  Country: US (occurrence: US)
  Receive Date: 20210510
  Receipt Date: 20210510
  Transmission Date: 20210717
  Serious: Yes (Other)
  Sender: FDA-Public Use
  Company Number: None

PATIENT
  Age: 48 Year
  Sex: Female
  Weight: 79.83 kg

DRUGS (4)
  1. OMEPRAZOLE. [Concomitant]
     Active Substance: OMEPRAZOLE
  2. FISH OIL [Concomitant]
     Active Substance: FISH OIL
  3. ETONOGESTREL?ETHINYL ESTRADIOL 0.12?0.015MG 24 HR VAGINAL RING [Suspect]
     Active Substance: ETHINYL ESTRADIOL\ETONOGESTREL
     Indication: CONTRACEPTION
     Dosage: ?          QUANTITY:1 DF DOSAGE FORM;?
     Route: 067
     Dates: start: 20210503, end: 20210505
  4. MOVE FREE JOINT HEALTH [Concomitant]

REACTIONS (3)
  - Haemorrhage [None]
  - Nausea [None]
  - Muscle spasms [None]
